FAERS Safety Report 15214810 (Version 8)
Quarter: 2021Q1

REPORT INFORMATION
  Report Type: Spontaneous
  Country: US (occurrence: US)
  Receive Date: 20180730
  Receipt Date: 20210126
  Transmission Date: 20210419
  Serious: No
  Sender: FDA-Public Use
  Company Number: US-PFIZER INC-2018285923

PATIENT
  Age: 53 Year
  Sex: Female

DRUGS (5)
  1. LYRICA [Suspect]
     Active Substance: PREGABALIN
     Dosage: 4 CAPSULE (DF), ONCE DAILY (4 PILLS TO EQUAL 1 PILL)
  2. LYRICA [Suspect]
     Active Substance: PREGABALIN
     Indication: FIBROMYALGIA
     Dosage: 200 MG, THREE TIMES DAILY
     Route: 048
  3. LYRICA [Suspect]
     Active Substance: PREGABALIN
     Indication: RHEUMATOID ARTHRITIS
     Dosage: UNK, ^75 MG EQUALS TO THE 200 MG, THREE TIMES DAILY^
  4. LYRICA [Suspect]
     Active Substance: PREGABALIN
     Indication: BACK PAIN
     Dosage: UNK
     Dates: end: 201807
  5. LYRICA [Suspect]
     Active Substance: PREGABALIN
     Dosage: 200 MG, 3X/DAY
     Route: 048
     Dates: start: 20190625

REACTIONS (7)
  - Limb discomfort [Unknown]
  - Gait disturbance [Unknown]
  - Anxiety [Unknown]
  - Burning sensation [Unknown]
  - Frustration tolerance decreased [Unknown]
  - Depression [Unknown]
  - Intentional product use issue [Unknown]
